FAERS Safety Report 20429536 (Version 1)
Quarter: 2022Q1

REPORT INFORMATION
  Report Type: Spontaneous
  Country: US (occurrence: None)
  Receive Date: 20220203
  Receipt Date: 20220203
  Transmission Date: 20220423
  Serious: Yes (Other)
  Sender: FDA-Public Use
  Company Number: None

PATIENT
  Age: 44 Year
  Sex: Female
  Weight: 83.25 kg

DRUGS (3)
  1. HERBALS\MITRAGYNINE [Suspect]
     Active Substance: HERBALS\MITRAGYNINE
     Indication: Euphoric mood
     Dosage: OTHER QUANTITY : 1 TEASPOON(S);?FREQUENCY : 3 TIMES A DAY;?
     Route: 048
  2. HERBALS\MITRAGYNINE [Suspect]
     Active Substance: HERBALS\MITRAGYNINE
     Indication: Energy increased
  3. WOMEN^S MULTIVITAMIN [Concomitant]

REACTIONS (6)
  - Product odour abnormal [None]
  - Product physical consistency issue [None]
  - Vomiting [None]
  - Pyrexia [None]
  - Suspected product contamination [None]
  - Illness [None]

NARRATIVE: CASE EVENT DATE: 20220202
